FAERS Safety Report 20436918 (Version 1)
Quarter: 2022Q1

REPORT INFORMATION
  Report Type: Spontaneous
  Country: US (occurrence: US)
  Receive Date: 20220207
  Receipt Date: 20220207
  Transmission Date: 20220423
  Serious: Yes (Other)
  Sender: FDA-Public Use
  Company Number: US-NOVARTISTESTPH-NVSC2022US025272

PATIENT

DRUGS (1)
  1. KYMRIAH [Suspect]
     Active Substance: TISAGENLECLEUCEL
     Indication: Acute lymphocytic leukaemia refractory
     Dosage: UNK UNK, ONCE/SINGLE(1.8X10E8 CAR-POSITIVE VIABLE T CELLS)
     Route: 042

REACTIONS (1)
  - Post-depletion B-cell recovery [Unknown]
